FAERS Safety Report 9040467 (Version 1)
Quarter: 2013Q1

REPORT INFORMATION
  Report Type: Report from Study
  Country: US (occurrence: US)
  Receive Date: 20130129
  Receipt Date: 20130129
  Transmission Date: 20140127
  Serious: No
  Sender: FDA-Public Use
  Company Number: US-ABBOTT-12P-163-0889418-00

PATIENT
  Age: 59 None
  Sex: Female
  Weight: 110.78 kg

DRUGS (5)
  1. HUMIRA 40 MG/ 0.8 ML PRE-FILLED SYRINGE [Suspect]
     Indication: RHEUMATOID ARTHRITIS
     Route: 058
     Dates: start: 2000
  2. HUMIRA 40 MG/ 0.8 ML PRE-FILLED SYRINGE [Suspect]
  3. TRAMADOL [Concomitant]
     Indication: PRODUCT USED FOR UNKNOWN INDICATION
  4. DIOVAN [Concomitant]
     Indication: HYPERTENSION
  5. TOPROL [Concomitant]
     Indication: HYPERTENSION

REACTIONS (3)
  - Nasopharyngitis [Recovering/Resolving]
  - Bronchitis [Recovering/Resolving]
  - Pain [Recovered/Resolved]
